FAERS Safety Report 25282469 (Version 1)
Quarter: 2025Q2

REPORT INFORMATION
  Report Type: Spontaneous
  Country: US (occurrence: None)
  Receive Date: 20250507
  Receipt Date: 20250507
  Transmission Date: 20250717
  Serious: Yes (Death, Hospitalization)
  Sender: FDA-CTU
  Company Number: None

PATIENT
  Age: 55 Year
  Sex: Male

DRUGS (13)
  1. AMBRISENTAN [Suspect]
     Active Substance: AMBRISENTAN
     Indication: Pulmonary arterial hypertension
     Dosage: FREQUENCY : DAILY;?
     Route: 048
     Dates: start: 20220414, end: 20250329
  2. TADALAFIL [Suspect]
     Active Substance: TADALAFIL
  3. ASPIRIN [Suspect]
     Active Substance: ASPIRIN
  4. LACTULOSE [Suspect]
     Active Substance: LACTULOSE
  5. POTASSIUM CHLORIDE [Concomitant]
     Active Substance: POTASSIUM CHLORIDE
  6. TORSEMIDE [Concomitant]
     Active Substance: TORSEMIDE
  7. SPIRONOLACTONE [Concomitant]
     Active Substance: SPIRONOLACTONE
  8. ASTELIN [Concomitant]
     Active Substance: AZELASTINE HYDROCHLORIDE
  9. LISINOPRIL [Concomitant]
     Active Substance: LISINOPRIL
  10. ATORVASTATIN [Concomitant]
     Active Substance: ATORVASTATIN
  11. ALLOPURINOL [Concomitant]
     Active Substance: ALLOPURINOL
  12. ALBUTEROL SULFATE [Concomitant]
     Active Substance: ALBUTEROL SULFATE
  13. FINASTERIDE [Concomitant]
     Active Substance: FINASTERIDE

REACTIONS (5)
  - Pleural effusion [None]
  - Ascites [None]
  - Splenomegaly [None]
  - Cardiogenic shock [None]
  - Respiratory failure [None]

NARRATIVE: CASE EVENT DATE: 20250319
